FAERS Safety Report 14816712 (Version 4)
Quarter: 2019Q2

REPORT INFORMATION
  Report Type: Spontaneous
  Country: US (occurrence: US)
  Receive Date: 20180426
  Receipt Date: 20190412
  Transmission Date: 20190711
  Serious: Yes (Hospitalization)
  Sender: FDA-Public Use
  Company Number: US-ACTELION-A-NJ2018-171193

PATIENT
  Sex: Female

DRUGS (2)
  1. REMODULIN [Concomitant]
     Active Substance: TREPROSTINIL
     Dosage: UNK
  2. TRACLEER [Suspect]
     Active Substance: BOSENTAN
     Indication: PULMONARY ARTERIAL HYPERTENSION
     Dosage: 125 MG, BID
     Route: 048
     Dates: start: 20170623

REACTIONS (8)
  - Metapneumovirus infection [Unknown]
  - Emphysema [Unknown]
  - Dyspnoea [Unknown]
  - Dizziness [Unknown]
  - Syncope [Unknown]
  - Pulmonary arterial hypertension [Unknown]
  - Sleep apnoea syndrome [Unknown]
  - Oxygen saturation decreased [Unknown]
